FAERS Safety Report 4745410-8 (Version None)
Quarter: 2005Q3

REPORT INFORMATION
  Report Type: 
  Country: None (occurrence: None)
  Receive Date: 20050815
  Receipt Date: 20050427
  Transmission Date: 20060218
  Serious: Yes (Other)
  Sender: FDA-Public Use
  Company Number: 2005BL002532

PATIENT
  Age: 20 Year
  Sex: Male
  Weight: 88.4514 kg

DRUGS (3)
  1. PILOCARPINE HYDROCHLORIDE [Suspect]
     Indication: EYE OPERATION COMPLICATION
     Dosage: 2 DROP; TWICE A DAY; OPTHALMIC
     Route: 047
     Dates: start: 20041101, end: 20041201
  2. PILOCARPINE HYDROCHLORIDE [Suspect]
     Indication: EYE OPERATION COMPLICATION
     Dosage: 2 DROP; TWICE A DAY; OPHTHALMIC
     Route: 047
     Dates: start: 20041201, end: 20050401
  3. ALPHAGAN P [Concomitant]

REACTIONS (14)
  - DISTURBANCE IN ATTENTION [None]
  - EMOTIONAL DISORDER [None]
  - EYE OPERATION COMPLICATION [None]
  - IMPAIRED DRIVING ABILITY [None]
  - MENTAL IMPAIRMENT [None]
  - MIOSIS [None]
  - MYOPIA [None]
  - PUPILLARY DISORDER [None]
  - PUPILS UNEQUAL [None]
  - TEARFULNESS [None]
  - THINKING ABNORMAL [None]
  - VISION BLURRED [None]
  - VISUAL DISTURBANCE [None]
  - VITREOUS FLOATERS [None]
